FAERS Safety Report 10334075 (Version 2)
Quarter: 2016Q1

REPORT INFORMATION
  Report Type: Report from Study
  Country: US (occurrence: US)
  Receive Date: 20140723
  Receipt Date: 20160209
  Transmission Date: 20160525
  Serious: Yes (Other)
  Sender: FDA-Public Use
  Company Number: US-ROCHE-1438540

PATIENT

DRUGS (4)
  1. DEXAMETHASONE. [Suspect]
     Active Substance: DEXAMETHASONE
     Indication: LYMPHOMA
     Route: 065
  2. MITOXANTRONE [Suspect]
     Active Substance: MITOXANTRONE HYDROCHLORIDE
     Indication: LYMPHOMA
     Route: 065
  3. RITUXIMAB [Suspect]
     Active Substance: RITUXIMAB
     Indication: LYMPHOMA
     Route: 065
  4. FLUDARABINE [Suspect]
     Active Substance: FLUDARABINE PHOSPHATE
     Indication: LYMPHOMA
     Route: 065

REACTIONS (23)
  - Anxiety [Unknown]
  - Vomiting [Unknown]
  - Cervix carcinoma [Unknown]
  - Thrombocytopenia [Unknown]
  - Myelodysplastic syndrome [Unknown]
  - Transitional cell carcinoma [Unknown]
  - Pancreatic carcinoma [Unknown]
  - Malignant melanoma [Unknown]
  - Anaemia [Unknown]
  - Breast cancer [Unknown]
  - Febrile neutropenia [Unknown]
  - Prostate cancer [Unknown]
  - Renal cancer [Unknown]
  - Diffuse large B-cell lymphoma [Unknown]
  - Infection [Unknown]
  - Fatigue [Unknown]
  - Nausea [Unknown]
  - Depression [Unknown]
  - Lung neoplasm malignant [Unknown]
  - Colon cancer [Unknown]
  - Hepatic cancer [Unknown]
  - Neutropenia [Unknown]
  - Skin cancer [Unknown]
